FAERS Safety Report 10086892 (Version 3)
Quarter: 2014Q2

REPORT INFORMATION
  Report Type: Spontaneous
  Country: JP (occurrence: JP)
  Receive Date: 20140418
  Receipt Date: 20140520
  Transmission Date: 20141212
  Serious: Yes (Hospitalization)
  Sender: FDA-Public Use
  Company Number: JP-TAKEDA-2014TJP005085

PATIENT
  Age: 69 Year
  Sex: Male

DRUGS (4)
  1. LANSAP 800 [Suspect]
     Indication: HELICOBACTER INFECTION
     Dosage: 0.5 DF, QD
     Route: 048
     Dates: start: 20140410, end: 20140410
  2. ATENOLOL [Concomitant]
     Indication: HYPERTENSION
     Dosage: 12.5 MG, QD
     Route: 048
     Dates: start: 20131218
  3. ACETYLSALICYLIC ACID [Concomitant]
     Indication: CAROTID ARTERIOSCLEROSIS
     Dosage: 100 MG, QD
     Route: 048
     Dates: start: 20080624
  4. MICAMLO AP [Concomitant]
     Indication: HYPERTENSION
     Dosage: 1 DF, QD
     Route: 048
     Dates: start: 20140409

REACTIONS (4)
  - Colitis ischaemic [Recovered/Resolved]
  - Hyperthermia [Recovered/Resolved]
  - Melaena [Recovered/Resolved]
  - Platelet count decreased [Recovering/Resolving]
